FAERS Safety Report 9316461 (Version 1)
Quarter: 2013Q2

REPORT INFORMATION
  Report Type: Spontaneous
  Country: US (occurrence: None)
  Receive Date: 20130528
  Receipt Date: 20130528
  Transmission Date: 20140414
  Serious: Yes (Other)
  Sender: FDA-Public Use
  Company Number: None

PATIENT
  Age: 77 Year
  Sex: Male
  Weight: 77 kg

DRUGS (2)
  1. EXJADE 500MG NOVARTIS [Suspect]
     Route: 048
     Dates: start: 20130501, end: 20130523
  2. EXJADE 250MG NOVARTIS [Suspect]
     Route: 048
     Dates: start: 20130501, end: 20130523

REACTIONS (1)
  - Liver function test abnormal [None]
